FAERS Safety Report 9943262 (Version 1)
Quarter: 2014Q1

REPORT INFORMATION
  Report Type: Spontaneous
  Country: FR (occurrence: FR)
  Receive Date: 20140303
  Receipt Date: 20140303
  Transmission Date: 20141002
  Serious: Yes (Other)
  Sender: FDA-Public Use
  Company Number: FR-PFIZER INC-2014054780

PATIENT
  Age: 63 Year
  Sex: Female

DRUGS (11)
  1. IMIPENEM [Suspect]
     Indication: KLEBSIELLA INFECTION
     Dosage: 500 MG, 3X/DAY
     Route: 042
     Dates: start: 20140103
  2. IMIPENEM [Suspect]
     Indication: STAPHYLOCOCCAL INFECTION
  3. FOSFOCINA [Suspect]
     Indication: KLEBSIELLA INFECTION
     Dosage: UNK
     Route: 042
     Dates: start: 20140103, end: 20140117
  4. FOSFOCINA [Suspect]
     Indication: STAPHYLOCOCCAL INFECTION
  5. VANCOMYCIN [Concomitant]
     Indication: KLEBSIELLA INFECTION
     Dosage: UNK
     Dates: start: 20140103, end: 20140117
  6. VANCOMYCIN [Concomitant]
     Indication: STAPHYLOCOCCAL INFECTION
  7. AMOXYCILLIN/CLAVULANIC ACID [Concomitant]
     Dosage: UNK
  8. DALACINE [Suspect]
     Indication: KLEBSIELLA INFECTION
     Dosage: 2400 MG, DAILY
     Dates: start: 20140117
  9. DALACINE [Suspect]
     Indication: STAPHYLOCOCCAL INFECTION
     Dosage: 1200 MG, DAILY
     Route: 048
     Dates: start: 20140211
  10. RIFAMPICIN [Suspect]
     Indication: KLEBSIELLA INFECTION
     Dosage: 1200 MG, DAILY
     Dates: start: 20140117
  11. RIFAMPICIN [Suspect]
     Indication: STAPHYLOCOCCAL INFECTION
     Dosage: 1200 MG, DAILY
     Route: 048
     Dates: start: 20140211

REACTIONS (1)
  - Pancytopenia [Unknown]
